FAERS Safety Report 5501687-2 (Version None)
Quarter: 2007Q4

REPORT INFORMATION
  Report Type: 
  Country: None (occurrence: None)
  Receive Date: 20071026
  Receipt Date: 20071015
  Transmission Date: 20080405
  Serious: Yes (Other)
  Sender: FDA-Public Use
  Company Number: FDB-2007-026

PATIENT
  Age: 42 Year
  Sex: Female

DRUGS (1)
  1. MDP - AMERSCAN MEDRONATE II AGENT; NYCOMED AMERSHAM [Suspect]
     Indication: BONE SCAN
     Dosage: 555 MBQ (15MCI); IV
     Route: 042

REACTIONS (3)
  - HEPATIC FUNCTION ABNORMAL [None]
  - RENAL IMPAIRMENT [None]
  - TYPE IV HYPERSENSITIVITY REACTION [None]
